FAERS Safety Report 10195882 (Version 1)
Quarter: 2014Q2

REPORT INFORMATION
  Report Type: Other
  Country: CN (occurrence: CN)
  Receive Date: 20140527
  Receipt Date: 20140527
  Transmission Date: 20141212
  Serious: Yes (Hospitalization, Other)
  Sender: FDA-Public Use
  Company Number: CN-ASTELLAS-2014JP006846

PATIENT
  Age: 55 Year
  Sex: Male
  Weight: 50.5 kg

DRUGS (6)
  1. PROGRAF [Suspect]
     Indication: RENAL TRANSPLANT
     Route: 048
     Dates: start: 20100910
  2. PROGRAF [Suspect]
     Route: 048
     Dates: start: 2013
  3. CELLCEPT                           /01275102/ [Concomitant]
     Indication: RENAL TRANSPLANT
     Route: 065
     Dates: start: 20100910
  4. PREDNISONE [Concomitant]
     Indication: RENAL TRANSPLANT
     Route: 065
     Dates: start: 20100910
  5. HERBESSER [Concomitant]
     Indication: RENAL TRANSPLANT
     Route: 048
     Dates: start: 20100910
  6. HERBESSER [Concomitant]
     Route: 048
     Dates: start: 2013

REACTIONS (4)
  - Osteonecrosis [Not Recovered/Not Resolved]
  - Lung infection [Not Recovered/Not Resolved]
  - Immunosuppressant drug level increased [Not Recovered/Not Resolved]
  - Blood glucose increased [Not Recovered/Not Resolved]
